FAERS Safety Report 18381767 (Version 2)
Quarter: 2020Q4

REPORT INFORMATION
  Report Type: Spontaneous
  Country: US (occurrence: US)
  Receive Date: 20201014
  Receipt Date: 20201113
  Transmission Date: 20210114
  Serious: Yes (Other)
  Sender: FDA-Public Use
  Company Number: US-BAYER-2020-215370

PATIENT
  Age: 19 Year
  Sex: Male

DRUGS (2)
  1. KOGENATE FS [Suspect]
     Active Substance: ANTIHEMOPHILIC FACTOR, HUMAN RECOMBINANT
     Dosage: UNSURE NUMBER OF DOSES FOR THE EVENT BROKE LEFT HAND FINGER
     Dates: start: 20201001
  2. KOGENATE FS [Suspect]
     Active Substance: ANTIHEMOPHILIC FACTOR, HUMAN RECOMBINANT
     Dosage: 5000 U
     Route: 042

REACTIONS (1)
  - Hand fracture [None]

NARRATIVE: CASE EVENT DATE: 20201001
